FAERS Safety Report 9018338 (Version 1)
Quarter: 2013Q1

REPORT INFORMATION
  Report Type: Spontaneous
  Country: US (occurrence: None)
  Receive Date: 20130111
  Receipt Date: 20130111
  Transmission Date: 20140127
  Serious: Yes (Life-Threatening, Hospitalization)
  Sender: FDA-Public Use
  Company Number: None

PATIENT
  Age: 33 Year
  Sex: Female
  Weight: 129.8 kg

DRUGS (1)
  1. REBIF [Suspect]
     Indication: MULTIPLE SCLEROSIS
     Dosage: 44MCG Q MONDAY, -WED, FRI SQ
     Route: 058
     Dates: start: 20120101, end: 20120729

REACTIONS (4)
  - Thrombotic thrombocytopenic purpura [None]
  - Plasmapheresis [None]
  - Anaemia [None]
  - Renal failure acute [None]
